FAERS Safety Report 7776998-0 (Version None)
Quarter: 2011Q3

REPORT INFORMATION
  Report Type: 
  Country: None (occurrence: None)
  Receive Date: 20110926
  Receipt Date: 20110926
  Transmission Date: 20111222
  Serious: No
  Sender: FDA-Public Use
  Company Number: None

PATIENT
  Age: 76 Year
  Sex: Male
  Weight: 90.718 kg

DRUGS (1)
  1. ECONAZOLE NITRATE [Suspect]
     Indication: TINEA CRURIS
     Dosage: 2 LIGHT APPLICATIONS TO SKIN
     Route: 061

REACTIONS (5)
  - GAIT DISTURBANCE [None]
  - DIZZINESS [None]
  - NAUSEA [None]
  - VERTIGO [None]
  - TREMOR [None]
